FAERS Safety Report 25258264 (Version 1)
Quarter: 2025Q2

REPORT INFORMATION
  Report Type: Spontaneous
  Country: CN (occurrence: CN)
  Receive Date: 20250501
  Receipt Date: 20250501
  Transmission Date: 20250716
  Serious: Yes (Life-Threatening, Other)
  Sender: ASTELLAS
  Company Number: CN-ASTELLAS-2025-AER-023934

PATIENT
  Age: 71 Year
  Sex: Female
  Weight: 44.0 kg

DRUGS (1)
  1. CRESEMBA [Suspect]
     Active Substance: ISAVUCONAZONIUM SULFATE
     Indication: Aspergillus infection
     Dosage: QD
     Route: 042
     Dates: start: 20250324, end: 20250324

REACTIONS (1)
  - Anaphylactic shock [Recovered/Resolved]

NARRATIVE: CASE EVENT DATE: 20250324
